FAERS Safety Report 20570888 (Version 1)
Quarter: 2022Q1

REPORT INFORMATION
  Report Type: Other
  Country: US (occurrence: US)
  Receive Date: 20220309
  Receipt Date: 20220309
  Transmission Date: 20220423
  Serious: Yes (Other)
  Sender: FDA-Public Use
  Company Number: US-MACLEODS PHARMA UK LTD-MAC2022034703

PATIENT

DRUGS (5)
  1. EMTRICITABINE\TENOFOVIR [Suspect]
     Active Substance: EMTRICITABINE\TENOFOVIR
     Indication: Product used for unknown indication
     Dosage: 500 MILLIGRAM, QD, ONE COURSE DURING FIRST TRIMESTER
     Route: 048
     Dates: start: 20210707
  2. BIKTARVY [Suspect]
     Active Substance: BICTEGRAVIR SODIUM\EMTRICITABINE\TENOFOVIR ALAFENAMIDE FUMARATE
     Indication: Product used for unknown indication
     Dosage: UNK, ONE COURSE, TAB/CAPS DURING FIRST TRIMESTE
     Route: 048
     Dates: start: 20210105, end: 20210707
  3. TIVICAY [Suspect]
     Active Substance: DOLUTEGRAVIR SODIUM
     Indication: Product used for unknown indication
     Dosage: 50 MILLIGRAM, QD, ONE COURSE DURING FIRST TRIMESTER
     Route: 048
     Dates: start: 20210707
  4. RETROVIR [Suspect]
     Active Substance: ZIDOVUDINE
     Indication: Product used for unknown indication
     Dosage: 2 MILLIGRAM/KILOGRAM PER HR, ONE COURSE DURING THIRD TRIMESTER
     Route: 042
     Dates: start: 20220211, end: 20220211
  5. RETROVIR [Suspect]
     Active Substance: ZIDOVUDINE
     Dosage: 1 MILLIGRAM/KILOGRAM PER HR, TWO COURSE DURING THIRD TRIMESTER
     Route: 042
     Dates: start: 20220211, end: 20220211

REACTIONS (2)
  - Drug withdrawal syndrome neonatal [Unknown]
  - Foetal exposure during pregnancy [Unknown]
